FAERS Safety Report 10689886 (Version 1)
Quarter: 2015Q1

REPORT INFORMATION
  Report Type: Spontaneous
  Country: US (occurrence: None)
  Receive Date: 20150102
  Receipt Date: 20150102
  Transmission Date: 20150720
  Serious: Yes (Life-Threatening)
  Sender: FDA-Public Use
  Company Number: None

PATIENT
  Age: 61 Year
  Sex: Female
  Weight: 99 kg

DRUGS (15)
  1. ALBUTEROL (VENTOLIN HFA) [Concomitant]
  2. ALBUTEROL (PROVENTIL) [Concomitant]
  3. SYNTHROID [Concomitant]
     Active Substance: LEVOTHYROXINE SODIUM
  4. IPRATROPIUM (ATROVENT) [Concomitant]
  5. LISINOPRIL. [Suspect]
     Active Substance: LISINOPRIL
     Indication: PROPHYLAXIS
     Dosage: 12/4 PM, ONE DOSE
     Route: 048
  6. MYCOPHENOLATE (CELLCEPT) [Concomitant]
  7. LISINOPRIL. [Suspect]
     Active Substance: LISINOPRIL
     Indication: HYPERTENSION
     Dosage: 12/4 PM, ONE DOSE
     Route: 048
  8. DEXAMETHASONE (DECADRON) [Concomitant]
  9. ASPIRIN EC [Concomitant]
     Active Substance: ASPIRIN
  10. VENLAFAXINE (EFFEXOR-XR) [Concomitant]
  11. ASCORBIC ACID (VITAMIN C) [Concomitant]
     Active Substance: ASCORBIC ACID
  12. MULTIPLE VITAMINS - MINERALS (CENTRUM SILVER ADULT 50+) [Concomitant]
  13. VITAMIN E [Concomitant]
     Active Substance: .ALPHA.-TOCOPHEROL
  14. LISINOPRIL. [Suspect]
     Active Substance: LISINOPRIL
     Indication: RENAL DISORDER
     Dosage: 12/4 PM, ONE DOSE
     Route: 048
  15. VITAMIN B-12 (CYANOCOBALAMIN) [Concomitant]

REACTIONS (6)
  - Normochromic normocytic anaemia [None]
  - Procedural complication [None]
  - Complement factor C4 decreased [None]
  - Complement factor C3 decreased [None]
  - Pneumonia [None]
  - Angioedema [None]

NARRATIVE: CASE EVENT DATE: 20141205
